FAERS Safety Report 12726809 (Version 8)
Quarter: 2018Q2

REPORT INFORMATION
  Report Type: Spontaneous
  Country: US (occurrence: US)
  Receive Date: 20160908
  Receipt Date: 20180511
  Transmission Date: 20180711
  Serious: No
  Sender: FDA-Public Use
  Company Number: US-ACTELION-A-US2016-141740

PATIENT
  Age: 82 Year
  Sex: Female

DRUGS (21)
  1. HYDROCODONE [Concomitant]
     Active Substance: HYDROCODONE
  2. METAMUCIL [Concomitant]
     Active Substance: PLANTAGO SEED
  3. DICLOPHENAC [Concomitant]
     Active Substance: DICLOFENAC SODIUM
  4. AMLODIPINE [Concomitant]
     Active Substance: AMLODIPINE BESYLATE
  5. SERTRALINE [Concomitant]
     Active Substance: SERTRALINE HYDROCHLORIDE
  6. PREDNISONE. [Concomitant]
     Active Substance: PREDNISONE
  7. FUROSEMIDE. [Concomitant]
     Active Substance: FUROSEMIDE
  8. DYCLONINE [Concomitant]
     Active Substance: DYCLONINE
  9. BENADRYL [Concomitant]
     Active Substance: DIPHENHYDRAMINE HYDROCHLORIDE
  10. ESBRIET [Suspect]
     Active Substance: PIRFENIDONE
     Indication: PRODUCT USED FOR UNKNOWN INDICATION
     Dosage: 801 MG, TID
     Route: 065
  11. DIAZEPAM. [Concomitant]
     Active Substance: DIAZEPAM
  12. METOLAZONE. [Concomitant]
     Active Substance: METOLAZONE
  13. ACETAMINOPHEN. [Concomitant]
     Active Substance: ACETAMINOPHEN
  14. ADCIRCA [Concomitant]
     Active Substance: TADALAFIL
  15. OPSUMIT [Suspect]
     Active Substance: MACITENTAN
     Indication: PULMONARY ARTERIAL HYPERTENSION
     Dosage: 10 MG, QD
     Route: 048
     Dates: start: 20140314
  16. TYVASO [Concomitant]
     Active Substance: TREPROSTINIL
  17. CRESTOR [Concomitant]
     Active Substance: ROSUVASTATIN CALCIUM
  18. SPIRONOLACTONE. [Concomitant]
     Active Substance: SPIRONOLACTONE
  19. DIOVAN [Concomitant]
     Active Substance: VALSARTAN
  20. DETROL LA [Concomitant]
     Active Substance: TOLTERODINE TARTRATE
  21. CHOLESTYRAMINE. [Concomitant]
     Active Substance: CHOLESTYRAMINE

REACTIONS (13)
  - Weight increased [Recovered/Resolved]
  - Nausea [Unknown]
  - Diarrhoea [Unknown]
  - Peripheral swelling [Unknown]
  - Dyspnoea [Unknown]
  - Dizziness [Unknown]
  - Hypotension [Unknown]
  - Chest pain [Unknown]
  - Nasopharyngitis [Unknown]
  - Fluid retention [Unknown]
  - Cough [Unknown]
  - Oedema [Unknown]
  - Dental operation [Unknown]

NARRATIVE: CASE EVENT DATE: 20160810
